FAERS Safety Report 5907376-4 (Version None)
Quarter: 2008Q4

REPORT INFORMATION
  Report Type: 
  Country: None (occurrence: None)
  Receive Date: 20081003
  Receipt Date: 20080924
  Transmission Date: 20090506
  Serious: Yes (Hospitalization)
  Sender: FDA-Public Use
  Company Number: US-JNJFOC-20080905966

PATIENT
  Sex: Male
  Weight: 61.2 kg

DRUGS (25)
  1. IMODIUM [Suspect]
  2. IMODIUM [Suspect]
     Indication: DIARRHOEA
  3. AVASTIN [Concomitant]
     Dosage: 975 MG, DAY 1 OF 21 DAY CYCLE
     Route: 042
  4. AVASTIN [Concomitant]
     Indication: NON-SMALL CELL LUNG CANCER
     Dosage: 1019 MG, DAY 1 OF 21 DAY CYCLE
     Route: 042
  5. PACLITAXEL [Concomitant]
     Dosage: 344 MG, DAY 1 OF 21 DAY CYCLE
     Route: 042
  6. PACLITAXEL [Concomitant]
     Indication: NON-SMALL CELL LUNG CANCER
     Dosage: 352 MG, DAY 1 OF 21 DAY CYCLE
     Route: 042
  7. CARBOPLATIN [Concomitant]
     Dosage: 602 MG, DAY 1 OF 21 DAY CYCLE
     Route: 042
  8. CARBOPLATIN [Concomitant]
     Indication: NON-SMALL CELL LUNG CANCER
     Dosage: 616 MG, DAY 1 OF 21 DAY CYCLE
     Route: 042
  9. PF-3512676 [Concomitant]
     Dosage: 12.0 MG, DAY 8 AND DAY 15 OF 21 DAY CYCLE
     Route: 058
  10. PF-3512676 [Concomitant]
     Dosage: 12.2 MG, DAY 8 AND DAY 15 OF 21 DAY CYCLE
     Route: 058
  11. PF-3512676 [Concomitant]
     Dosage: 13 MG, DAY 8 AND DAY 15 OF 21 DAY CYCLE
     Route: 058
  12. PF-3512676 [Concomitant]
     Indication: NON-SMALL CELL LUNG CANCER
     Dosage: 13 MG, DAY 8 AND DAY 15 OF 21 DAY CYCLE
     Route: 058
  13. POTASSIUM CHLORIDE [Concomitant]
     Indication: BLOOD POTASSIUM DECREASED
     Route: 048
  14. TAMSULOSIN HCL [Concomitant]
     Indication: POLLAKIURIA
     Dosage: .4 INTIATED PRE-STUDY
     Route: 048
  15. MEGACE [Concomitant]
     Indication: ANOREXIA
     Route: 048
  16. DEXAMETHASONE [Concomitant]
     Route: 048
  17. TAGAMET FOR INJECTION [Concomitant]
     Route: 042
  18. ALOXI [Concomitant]
     Route: 042
  19. BENADRYL [Concomitant]
     Route: 042
  20. HEXADROL [Concomitant]
     Route: 042
  21. MAGNESIUM SULFATE [Concomitant]
     Indication: BLOOD MAGNESIUM DECREASED
     Route: 048
  22. LOMOTIL [Concomitant]
     Indication: DIARRHOEA
     Route: 048
  23. RESTORIL [Concomitant]
     Indication: INSOMNIA
     Route: 048
  24. COMPAZINE [Concomitant]
     Indication: NAUSEA
     Route: 048
  25. PERCOCET [Concomitant]
     Indication: PAIN
     Route: 048

REACTIONS (1)
  - SMALL INTESTINAL OBSTRUCTION [None]
